FAERS Safety Report 6792400-X (Version None)
Quarter: 2010Q2

REPORT INFORMATION
  Report Type: 
  Country: None (occurrence: None)
  Receive Date: 20100624
  Receipt Date: 20080723
  Transmission Date: 20101027
  Serious: No
  Sender: FDA-Public Use
  Company Number: US-PFIZER INC-2008063657

PATIENT
  Sex: Female

DRUGS (2)
  1. AROMASIN [Suspect]
  2. ARIMIDEX [Concomitant]

REACTIONS (1)
  - DIARRHOEA [None]
